FAERS Safety Report 10457351 (Version 1)
Quarter: 2014Q3

REPORT INFORMATION
  Report Type: Spontaneous
  Country: CL (occurrence: CL)
  Receive Date: 20140916
  Receipt Date: 20140916
  Transmission Date: 20150326
  Serious: Yes (Other)
  Sender: FDA-Public Use
  Company Number: CL-GLAXOSMITHKLINE-A1089188A

PATIENT
  Age: 42 Year
  Sex: Female

DRUGS (7)
  1. VENLAFAXINE [Concomitant]
     Active Substance: VENLAFAXINE HYDROCHLORIDE
     Dosage: 75MG PER DAY
  2. ZOLPIDEM [Concomitant]
     Active Substance: ZOLPIDEM\ZOLPIDEM TARTRATE
     Dosage: 5MG PER DAY
  3. BENLYSTA [Suspect]
     Active Substance: BELIMUMAB
     Indication: SYSTEMIC LUPUS ERYTHEMATOSUS
     Route: 042
     Dates: start: 20140718
  4. CEFADROXIL. [Concomitant]
     Active Substance: CEFADROXIL
     Dosage: 500MG TWICE PER DAY
  5. DEFLAZACORT [Concomitant]
     Active Substance: DEFLAZACORT
     Dosage: 6MG PER DAY
  6. HYDROXYCHLOROQUINE [Concomitant]
     Active Substance: HYDROXYCHLOROQUINE
     Dosage: 400MG PER DAY
  7. ASPIRIN. [Concomitant]
     Active Substance: ASPIRIN
     Dosage: 100MG PER DAY

REACTIONS (2)
  - Neutropenia [Unknown]
  - Folliculitis [Recovered/Resolved]

NARRATIVE: CASE EVENT DATE: 20140812
